FAERS Safety Report 4330737-4 (Version None)
Quarter: 2004Q1

REPORT INFORMATION
  Report Type: 
  Country: None (occurrence: None)
  Receive Date: 20040331
  Receipt Date: 20040316
  Transmission Date: 20041129
  Serious: Yes (Hospitalization)
  Sender: FDA-Public Use
  Company Number: A02200400966

PATIENT
  Age: 59 Year
  Sex: Male

DRUGS (1)
  1. FASTURTEC - (RASBURICASE) - POWDER - 1.5 MG/ML [Suspect]
     Indication: PROPHYLAXIS
     Dosage: DOSE ADMINISTERED BETWEEN 2 AND 4 MG, INTRAVENOUS
     Route: 042
     Dates: start: 20040302, end: 20040302

REACTIONS (5)
  - ANAPHYLACTIC REACTION [None]
  - HYPOTENSION [None]
  - NAUSEA [None]
  - RASH PRURITIC [None]
  - SHOCK [None]
